FAERS Safety Report 6150492-5 (Version None)
Quarter: 2009Q2

REPORT INFORMATION
  Report Type: 
  Country: None (occurrence: None)
  Receive Date: 20090409
  Receipt Date: 20090401
  Transmission Date: 20091009
  Serious: Yes (Other)
  Sender: FDA-Public Use
  Company Number: US-AVENTIS-200912035US

PATIENT
  Sex: Female
  Weight: 91.17 kg

DRUGS (2)
  1. LANTUS [Suspect]
     Route: 058
     Dates: start: 20070101
  2. WELCHOL [Concomitant]
     Indication: BLOOD CHOLESTEROL ABNORMAL
     Dosage: DOSE: UNK

REACTIONS (3)
  - CHOKING [None]
  - FOOT FRACTURE [None]
  - PAIN IN EXTREMITY [None]
